FAERS Safety Report 8005926-8 (Version None)
Quarter: 2011Q4

REPORT INFORMATION
  Report Type: 
  Country: None (occurrence: None)
  Receive Date: 20111223
  Receipt Date: 20110923
  Transmission Date: 20120403
  Serious: Yes (Death, Other)
  Sender: FDA-Public Use
  Company Number: GB-ROCHE-GNE323924

PATIENT
  Sex: Female
  Weight: 52.074 kg

DRUGS (6)
  1. ACETAMINOPHEN [Concomitant]
  2. LATANOPROST [Concomitant]
  3. SENNA [Concomitant]
  4. ISPAGHULA HUSK [Concomitant]
  5. LUCENTIS [Suspect]
     Indication: PRODUCT USED FOR UNKNOWN INDICATION
     Dosage: UNK UNK, UNKNOWN
     Route: 050
  6. LOPRAZOLAM [Concomitant]

REACTIONS (8)
  - HEAD INJURY [None]
  - PULMONARY EMBOLISM [None]
  - BRONCHOPNEUMONIA [None]
  - BRAIN COMPRESSION [None]
  - LACERATION [None]
  - SOFT TISSUE INJURY [None]
  - IMMOBILE [None]
  - SUBDURAL HAEMATOMA [None]
